FAERS Safety Report 8368045-7 (Version None)
Quarter: 2012Q2

REPORT INFORMATION
  Report Type: 
  Country: None (occurrence: None)
  Receive Date: 20120517
  Receipt Date: 20120514
  Transmission Date: 20120825
  Serious: Yes (Hospitalization)
  Sender: FDA-Public Use
  Company Number: US-B.I. PHARMACEUTICALS,INC./RIDGEFIELD-2012-BP-10789BP

PATIENT
  Age: 80 Year
  Sex: Male

DRUGS (13)
  1. ALLEGRA [Concomitant]
     Route: 048
  2. METOLAZONE [Concomitant]
     Route: 048
  3. MULTI-VITAMIN [Concomitant]
  4. SPIRIVA [Suspect]
     Dosage: 18 MCG
     Route: 055
     Dates: start: 20120420
  5. SIMVASTATIN [Concomitant]
     Route: 048
  6. GLIMEPIRIDE [Concomitant]
     Route: 048
  7. ASPIRIN [Concomitant]
     Dosage: 325 MG
     Route: 048
  8. ADVAIR DISKUS 100/50 [Concomitant]
     Route: 055
  9. BUMEX [Concomitant]
     Route: 048
  10. FISH OIL [Concomitant]
  11. METFORMIN HCL [Concomitant]
     Dosage: 500 MG
     Route: 048
  12. REVATIO [Concomitant]
  13. SPIRIVA [Suspect]
     Indication: CHRONIC OBSTRUCTIVE PULMONARY DISEASE
     Dosage: 18 MCG
     Route: 055
     Dates: start: 20090101, end: 20120410

REACTIONS (4)
  - URINARY TRACT INFECTION [None]
  - DYSPNOEA [None]
  - HYPOTENSION [None]
  - FLUID RETENTION [None]
